FAERS Safety Report 9301567 (Version 1)
Quarter: 2012Q4

REPORT INFORMATION
  Report Type: Spontaneous
  Country: KR (occurrence: None)
  Receive Date: 20121121
  Receipt Date: 20121121
  Transmission Date: 20130627
  Serious: Yes (Other)
  Sender: FDA-Public Use
  Company Number: KR-1195119

PATIENT
  Age: 60 Year
  Sex: Female

DRUGS (2)
  1. MAXITROL [Suspect]
     Indication: POSTOPERATIVE CARE
     Route: 047
     Dates: start: 201206
  2. FLAREX [Suspect]
     Indication: POSTOPERATIVE CARE
     Route: 047
     Dates: start: 201203

REACTIONS (5)
  - Blindness [None]
  - Corneal degeneration [None]
  - Eye inflammation [None]
  - No therapeutic response [None]
  - Corneal degeneration [None]
